FAERS Safety Report 16004946 (Version 1)
Quarter: 2019Q1

REPORT INFORMATION
  Report Type: Spontaneous
  Country: US (occurrence: US)
  Receive Date: 20190130
  Receipt Date: 20190130
  Transmission Date: 20190418
  Serious: No
  Sender: FDA-Public Use
  Company Number: None

PATIENT
  Age: 64 Year
  Sex: Female
  Weight: 44.91 kg

DRUGS (1)
  1. CARBIDOPA/LEVODOPA [Suspect]
     Active Substance: CARBIDOPA\LEVODOPA
     Indication: PARKINSON^S DISEASE
     Dosage: ?          OTHER DOSE:25/100 MG;?
     Route: 048
     Dates: start: 20181116, end: 20181128

REACTIONS (1)
  - Psychiatric decompensation [None]

NARRATIVE: CASE EVENT DATE: 20181127
